FAERS Safety Report 7278512-5 (Version None)
Quarter: 2011Q1

REPORT INFORMATION
  Report Type: 
  Country: None (occurrence: None)
  Receive Date: 20110202
  Receipt Date: 20110202
  Transmission Date: 20110831
  Serious: Yes (Hospitalization)
  Sender: FDA-Public Use
  Company Number: None

PATIENT
  Age: 40 Year
  Sex: Male
  Weight: 70.3075 kg

DRUGS (1)
  1. AMBIEN [Suspect]
     Indication: INSOMNIA
     Dosage: 1 AS NEEDED FOR SLEEP  PO
     Route: 048
     Dates: start: 20090201, end: 20090513

REACTIONS (6)
  - MENTAL STATUS CHANGES [None]
  - ANXIETY [None]
  - DEPRESSION [None]
  - HALLUCINATION [None]
  - MENTAL DISORDER [None]
  - SUICIDE ATTEMPT [None]
